FAERS Safety Report 9064788 (Version 2)
Quarter: 2013Q1

REPORT INFORMATION
  Report Type: Spontaneous
  Country: FI (occurrence: FI)
  Receive Date: 20130214
  Receipt Date: 20130320
  Transmission Date: 20140127
  Serious: Yes (Other)
  Sender: FDA-Public Use
  Company Number: FI-AMGEN-FINSP2013009935

PATIENT
  Age: 38 Year
  Sex: Male

DRUGS (3)
  1. ENBREL [Suspect]
     Indication: RHEUMATOID ARTHRITIS
     Dosage: 50 MG, WEEKLY
     Route: 058
     Dates: start: 20121025, end: 20121210
  2. TREXAN                             /00113801/ [Concomitant]
     Dosage: 7.5 MG, WEEKLY
  3. FOLIC ACID [Concomitant]
     Dosage: 5 MG, WEEKLY

REACTIONS (3)
  - Aqueductal stenosis [Not Recovered/Not Resolved]
  - Hydrocephalus [Not Recovered/Not Resolved]
  - Encephalopathy [Not Recovered/Not Resolved]
